FAERS Safety Report 7912841-4 (Version None)
Quarter: 2011Q4

REPORT INFORMATION
  Report Type: 
  Country: None (occurrence: None)
  Receive Date: 20111114
  Receipt Date: 20111104
  Transmission Date: 20120403
  Serious: Yes (Death, Hospitalization)
  Sender: FDA-Public Use
  Company Number: GB-GLAXOSMITHKLINE-B0745370A

PATIENT
  Sex: Male

DRUGS (11)
  1. VOLUMATIC [Concomitant]
  2. FORTIJUICE [Concomitant]
     Dosage: 200ML PER DAY
  3. HYOSCINE BUTYLBROMIDE [Concomitant]
  4. DORZOLAMIDE HYDROCHLORIDE [Concomitant]
  5. ADCAL-D3 [Concomitant]
  6. LEUPROLIDE ACETATE [Concomitant]
  7. ESOMEPRAZOLE [Concomitant]
  8. VENTOLIN [Suspect]
     Indication: ASTHMA
     Route: 065
  9. FLUTICASONE PROPIONATE/SALMETEROL [Suspect]
     Indication: ASTHMA
     Route: 065
     Dates: start: 20030101
  10. LATANOPROST [Concomitant]
  11. TRIAMCINOLONE ACETONIDE [Concomitant]

REACTIONS (4)
  - SUPRAPUBIC PAIN [None]
  - DRUG INEFFECTIVE [None]
  - PNEUMONIA [None]
  - ABDOMINAL INJURY [None]
